FAERS Safety Report 10055230 (Version 1)
Quarter: 2014Q2

REPORT INFORMATION
  Report Type: Spontaneous
  Country: IT (occurrence: IT)
  Receive Date: 20140403
  Receipt Date: 20140403
  Transmission Date: 20141212
  Serious: Yes (Disabling)
  Sender: FDA-Public Use
  Company Number: IT-PFIZER INC-2014092254

PATIENT
  Age: 74 Year
  Sex: Male

DRUGS (10)
  1. VFEND [Suspect]
     Indication: FUNGAL INFECTION
     Dosage: 2 DF, DAILY
     Route: 048
     Dates: start: 20131001
  2. FUROSEMIDE [Concomitant]
     Route: 048
  3. ALLOPURINOL [Concomitant]
  4. BISOPROLOL FUMARATE [Concomitant]
  5. SINVACOR [Concomitant]
     Route: 048
  6. PEPTAZOL [Concomitant]
     Route: 048
  7. KCL-RETARD [Concomitant]
     Route: 048
  8. TACHIDOL [Concomitant]
  9. AMARYL [Concomitant]
     Route: 048
  10. CARDIOASPIRIN [Concomitant]
     Route: 048

REACTIONS (1)
  - Dermatitis [Unknown]
